FAERS Safety Report 13144550 (Version 1)
Quarter: 2017Q1

REPORT INFORMATION
  Report Type: Spontaneous
  Country: US (occurrence: US)
  Receive Date: 20170124
  Receipt Date: 20170124
  Transmission Date: 20170428
  Serious: No
  Sender: FDA-Public Use
  Company Number: US-TEVA-632128USA

PATIENT
  Sex: Female

DRUGS (1)
  1. DEXTROAMPHETAMINE SULFATE. [Suspect]
     Active Substance: DEXTROAMPHETAMINE SULFATE
     Route: 065

REACTIONS (10)
  - Heart rate increased [Unknown]
  - Drug effect increased [Unknown]
  - Vision blurred [Unknown]
  - Disturbance in attention [Unknown]
  - Flatulence [Unknown]
  - Visual impairment [Unknown]
  - Tachyphrenia [Unknown]
  - Product substitution issue [Unknown]
  - Fatigue [Unknown]
  - Abdominal distension [Unknown]
